FAERS Safety Report 18248160 (Version 1)
Quarter: 2020Q3

REPORT INFORMATION
  Report Type: Spontaneous
  Country: US (occurrence: US)
  Receive Date: 20200909
  Receipt Date: 20200909
  Transmission Date: 20201103
  Serious: No
  Sender: FDA-Public Use
  Company Number: US-PERRIGO-20US009865

PATIENT
  Age: 45 Year
  Sex: Male
  Weight: 79.37 kg

DRUGS (1)
  1. ALBUTEROL SULFATE. [Suspect]
     Active Substance: ALBUTEROL SULFATE
     Indication: ASTHMA
     Dosage: UNKNOWN, DROPLETS, 3 TIMES WEEKLY,  PRN
     Route: 048
     Dates: start: 202006

REACTIONS (4)
  - Therapeutic product effect incomplete [Unknown]
  - Device delivery system issue [Not Recovered/Not Resolved]
  - Accidental exposure to product [Not Recovered/Not Resolved]
  - Underdose [Not Recovered/Not Resolved]

NARRATIVE: CASE EVENT DATE: 202006
